FAERS Safety Report 9193222 (Version 1)
Quarter: 2013Q1

REPORT INFORMATION
  Report Type: Spontaneous
  Country: SE (occurrence: SE)
  Receive Date: 20130327
  Receipt Date: 20130327
  Transmission Date: 20140127
  Serious: Yes (Hospitalization)
  Sender: FDA-Public Use
  Company Number: SE-009507513-1303SWE012901

PATIENT
  Age: 85 Year
  Sex: Female

DRUGS (12)
  1. COZAAR [Suspect]
     Indication: ESSENTIAL HYPERTENSION
     Dosage: 100 MG, QD
     Route: 048
     Dates: start: 20130125, end: 20130127
  2. SPIRONOLACTONE [Suspect]
     Indication: ESSENTIAL HYPERTENSION
     Dosage: 50 MG, QD
     Route: 048
     Dates: start: 20110908, end: 20130127
  3. ENALAPRIL MALEATE [Concomitant]
  4. FENTANYL [Concomitant]
  5. GABAPENTIN [Concomitant]
  6. NITROLINGUAL [Concomitant]
     Dosage: FORMULATION: SUBLINGUAL SPRAY
  7. AZARGA [Concomitant]
  8. ALPHAGAN [Concomitant]
  9. PANODIL [Concomitant]
  10. TROMBYL [Concomitant]
  11. LACTULOSE [Concomitant]
     Dosage: 670MG/ML (MEDA AB) FORMULATION: ORAL SOLUTION
     Route: 048
  12. MADOPARK [Concomitant]

REACTIONS (4)
  - Dehydration [Unknown]
  - Hyponatraemia [Unknown]
  - Renal failure acute [Unknown]
  - Blood creatinine increased [Unknown]
